FAERS Safety Report 21837171 (Version 9)
Quarter: 2025Q1

REPORT INFORMATION
  Report Type: Report from Study
  Country: BR (occurrence: BR)
  Receive Date: 20230109
  Receipt Date: 20250207
  Transmission Date: 20250409
  Serious: Yes (Hospitalization, Other)
  Sender: GLAXOSMITHKLINE
  Company Number: BR-GLAXOSMITHKLINE-BR2022AMR125938

PATIENT

DRUGS (3)
  1. MEPOLIZUMAB [Suspect]
     Active Substance: MEPOLIZUMAB
     Indication: Asthma
     Dosage: 100 MG, Q4W
     Dates: start: 20220819
  2. MEPOLIZUMAB [Suspect]
     Active Substance: MEPOLIZUMAB
     Indication: Asthma
     Dosage: 100 MG, Q4W
  3. BILASTINE [Suspect]
     Active Substance: BILASTINE
     Indication: Sinusitis

REACTIONS (20)
  - COVID-19 pneumonia [Unknown]
  - Dyspnoea [Unknown]
  - Bronchospasm [Unknown]
  - Diabetes mellitus [Unknown]
  - Rhinorrhoea [Unknown]
  - Nausea [Recovered/Resolved]
  - Influenza [Not Recovered/Not Resolved]
  - Oropharyngeal pain [Not Recovered/Not Resolved]
  - Sinusitis [Not Recovered/Not Resolved]
  - Nervousness [Unknown]
  - Secretion discharge [Not Recovered/Not Resolved]
  - Pruritus [Recovered/Resolved]
  - Erythema [Recovered/Resolved]
  - Condition aggravated [Unknown]
  - Vomiting [Unknown]
  - Disease complication [Unknown]
  - Product communication issue [Unknown]
  - Product dose omission issue [Unknown]
  - Inappropriate schedule of product administration [Unknown]
  - Product dose omission issue [Unknown]

NARRATIVE: CASE EVENT DATE: 20220819
